FAERS Safety Report 13372986 (Version 1)
Quarter: 2017Q1

REPORT INFORMATION
  Report Type: Report from Study
  Country: IL (occurrence: IL)
  Receive Date: 20170327
  Receipt Date: 20170327
  Transmission Date: 20170429
  Serious: Yes (Other)
  Sender: FDA-Public Use
  Company Number: IL-ASTRAZENECA-2017SE30545

PATIENT
  Age: 60 Year
  Sex: Female

DRUGS (1)
  1. TAGRISSO [Suspect]
     Active Substance: OSIMERTINIB
     Indication: LUNG CANCER METASTATIC
     Dosage: 80.0MG UNKNOWN
     Route: 048

REACTIONS (1)
  - Cardiac failure congestive [Unknown]
